FAERS Safety Report 8488018-3 (Version None)
Quarter: 2012Q3

REPORT INFORMATION
  Report Type: 
  Country: None (occurrence: None)
  Receive Date: 20120705
  Receipt Date: 20120629
  Transmission Date: 20120928
  Serious: Yes (Other)
  Sender: FDA-Public Use
  Company Number: PHEH2012US008482

PATIENT
  Sex: Female

DRUGS (3)
  1. THYROID TAB [Concomitant]
     Indication: THYROID DISORDER
     Route: 048
  2. RECLAST [Suspect]
     Indication: OSTEOPOROSIS
     Dosage: UNK
     Route: 042
     Dates: start: 20120410
  3. CYTOMEL [Concomitant]
     Indication: THYROID DISORDER
     Route: 048

REACTIONS (7)
  - ABASIA [None]
  - PAIN IN EXTREMITY [None]
  - NEUROPATHY PERIPHERAL [None]
  - NEURALGIA [None]
  - INFLUENZA LIKE ILLNESS [None]
  - ORAL DISCOMFORT [None]
  - PYREXIA [None]
